FAERS Safety Report 11472054 (Version 1)
Quarter: 2015Q3

REPORT INFORMATION
  Report Type: Spontaneous
  Country: US (occurrence: US)
  Receive Date: 20150908
  Receipt Date: 20150908
  Transmission Date: 20151125
  Serious: Yes (Hospitalization, Other)
  Sender: FDA-Public Use
  Company Number: US-PROCTER_AND_GAMBLE-CIO15054073

PATIENT
  Age: 54 Year
  Sex: Female

DRUGS (1)
  1. VICKS VAPORUB [Suspect]
     Active Substance: CAMPHOR (SYNTHETIC)\EUCALYPTUS OIL\MENTHOL
     Dosage: DAILY INGESTION OF CLOSE TO A FULL 3.53 OUNCE JAR FOR YEARS
     Route: 048

REACTIONS (12)
  - Ventricular tachycardia [Unknown]
  - Ventricular fibrillation [Unknown]
  - Pulmonary congestion [Not Recovered/Not Resolved]
  - Renal failure [Not Recovered/Not Resolved]
  - Mental status changes [Not Recovered/Not Resolved]
  - Confusional state [Not Recovered/Not Resolved]
  - Dehydration [Unknown]
  - Product use issue [Unknown]
  - Right ventricular failure [None]
  - Cardiac failure [Not Recovered/Not Resolved]
  - Condition aggravated [Not Recovered/Not Resolved]
  - Exposure via ingestion [Unknown]
